FAERS Safety Report 7061051-4 (Version None)
Quarter: 2010Q4

REPORT INFORMATION
  Report Type: 
  Country: None (occurrence: None)
  Receive Date: 20101026
  Receipt Date: 20100916
  Transmission Date: 20110411
  Serious: Yes (Death)
  Sender: FDA-Public Use
  Company Number: IN-PFIZER INC-2010132264

PATIENT
  Age: 52 Year
  Sex: Female

DRUGS (9)
  1. SUTENT [Suspect]
     Indication: METASTATIC RENAL CELL CARCINOMA
     Dosage: 50 MG, 1X/DAY
     Route: 048
  2. URSODEOXYCHOLIC ACID [Concomitant]
     Dosage: 3 MG, 3X/DAY
     Route: 048
  3. BECOSULES Z [Concomitant]
     Dosage: UNK
     Route: 048
  4. FLUCONAZOLE [Concomitant]
     Dosage: 2 MG, 1X/DAY
     Route: 048
  5. CIFRAN [Concomitant]
     Dosage: UNK
     Route: 048
  6. REGLAN [Concomitant]
     Dosage: 10 MG, UNK
     Route: 048
  7. DOMPERIDONE [Concomitant]
     Dosage: 10 MG, UNK
     Route: 048
  8. ARISTOZYME LIQUID [Concomitant]
     Dosage: UNK
     Route: 048
  9. GENTIAN VIOLET [Concomitant]
     Dosage: UNK

REACTIONS (1)
  - DEATH [None]
